FAERS Safety Report 8303446 (Version 5)
Quarter: 2012Q4

REPORT INFORMATION
  Report Type: 
  Country: JP (occurrence: JP)
  Receive Date: 20111220
  Receipt Date: 20121217
  Transmission Date: 20130627
  Serious: Yes (Death, Disabling, Other)
  Sender: FDA-Public Use
  Company Number: PHHY2011JP108184

PATIENT
  Age: 92 Year
  Sex: Female

DRUGS (7)
  1. RIVASTIGMINE [Suspect]
     Indication: DEMENTIA ALZHEIMER^S TYPE
     Dosage: 4.5 mg, Daily
     Route: 062
     Dates: start: 20110728, end: 20110824
  2. RIVASTIGMINE [Suspect]
     Dosage: 9 mg, Daily
     Route: 062
     Dates: start: 20110825, end: 20111005
  3. RIVASTIGMINE [Suspect]
     Dosage: 13.5 mg, Daily
     Route: 062
     Dates: start: 20111006, end: 20111031
  4. YOKUKAN-SAN [Concomitant]
     Indication: BEHAVIOURAL AND PSYCHIATRIC SYMPTOMS OF DEMENTIA
     Dosage: 2.5 g, TID
     Dates: start: 20100802
  5. ARICEPT D [Concomitant]
     Dosage: 5 mg, QD
     Dates: start: 20100426
  6. RISPERDAL [Concomitant]
     Dosage: 0.5 mg, once a day in the morning
     Dates: start: 20100426, end: 20111130
  7. RISPERDAL [Concomitant]
     Dosage: 0.5 mg, once a day in the evening
     Dates: start: 20100802

REACTIONS (10)
  - Death [Fatal]
  - Pemphigoid [Recovered/Resolved]
  - Blister [Recovered/Resolved]
  - Purulent discharge [Unknown]
  - Eczema [Unknown]
  - Rash pruritic [Recovered/Resolved]
  - Application site swelling [Unknown]
  - Immune system disorder [Not Recovered/Not Resolved]
  - Speech disorder [Unknown]
  - Erythema [Unknown]
